FAERS Safety Report 16067996 (Version 1)
Quarter: 2019Q1

REPORT INFORMATION
  Report Type: Spontaneous
  Country: US (occurrence: US)
  Receive Date: 20190313
  Receipt Date: 20190313
  Transmission Date: 20190418
  Serious: Yes (Other)
  Sender: FDA-Public Use
  Company Number: US-BAYER-2019-048801

PATIENT
  Age: 63 Year
  Sex: Female
  Weight: 79.82 kg

DRUGS (1)
  1. CIPRO [Suspect]
     Active Substance: CIPROFLOXACIN HYDROCHLORIDE
     Indication: GASTRIC DISORDER
     Dosage: UNK
     Dates: start: 2018, end: 201806

REACTIONS (10)
  - Sensitivity of teeth [None]
  - Inflammation [Recovering/Resolving]
  - Tendon pain [None]
  - Skin disorder [None]
  - Gastric disorder [Recovering/Resolving]
  - Loss of personal independence in daily activities [Recovering/Resolving]
  - Emotional disorder [Recovering/Resolving]
  - Tinnitus [Not Recovered/Not Resolved]
  - Arthralgia [Recovering/Resolving]
  - Gait disturbance [Recovering/Resolving]

NARRATIVE: CASE EVENT DATE: 2018
